FAERS Safety Report 25229529 (Version 1)
Quarter: 2025Q2

REPORT INFORMATION
  Report Type: Spontaneous
  Country: BE (occurrence: BE)
  Receive Date: 20250423
  Receipt Date: 20250423
  Transmission Date: 20250716
  Serious: Yes (Other)
  Sender: BRISTOL-MYERS SQUIBB COMPANY
  Company Number: BE-BRISTOL-MYERS SQUIBB COMPANY-2025-056618

PATIENT

DRUGS (5)
  1. CAMZYOS [Suspect]
     Active Substance: MAVACAMTEN
     Indication: Aortic valve incompetence
  2. BISOPROLOL [Concomitant]
     Active Substance: BISOPROLOL
     Indication: Product used for unknown indication
  3. BISOPROLOL [Concomitant]
     Active Substance: BISOPROLOL
  4. BISOPROLOL [Concomitant]
     Active Substance: BISOPROLOL
  5. SPIRONOLACTONE [Concomitant]
     Active Substance: SPIRONOLACTONE
     Indication: Product used for unknown indication

REACTIONS (8)
  - Dyspnoea [Recovering/Resolving]
  - Poor quality sleep [Recovering/Resolving]
  - Respiratory disorder [Recovering/Resolving]
  - Asthenia [Recovering/Resolving]
  - Heart rate decreased [Recovering/Resolving]
  - Tricuspid valve incompetence [Unknown]
  - Left ventricular dysfunction [Recovered/Resolved]
  - Off label use [Unknown]
